FAERS Safety Report 5540630-7 (Version None)
Quarter: 2007Q4

REPORT INFORMATION
  Report Type: 
  Country: None (occurrence: None)
  Receive Date: 20071129
  Receipt Date: 20070531
  Transmission Date: 20080405
  Serious: Yes (Other)
  Sender: FDA-Public Use
  Company Number: US200703002547

PATIENT
  Age: 38 Year
  Sex: Female
  Weight: 66.7 kg

DRUGS (6)
  1. ZYPREXA [Suspect]
     Dosage: 5 MG; 5 MG; 2.5 MG
     Dates: start: 20010501, end: 20020501
  2. ZYPREXA [Suspect]
     Dosage: 5 MG; 5 MG; 2.5 MG
     Dates: start: 20000301, end: 20040101
  3. ZYPREXA [Suspect]
     Dosage: 5 MG; 5 MG; 2.5 MG
     Dates: start: 20050501, end: 20051201
  4. ZOLOFT [Concomitant]
  5. WELLBUTRIN [Concomitant]
  6. LEXAPRO [Concomitant]

REACTIONS (6)
  - DIABETES MELLITUS [None]
  - DIABETIC COMA [None]
  - DIABETIC KETOACIDOSIS [None]
  - HYPERGLYCAEMIA [None]
  - HYPERTENSION [None]
  - PANCREATITIS [None]
